FAERS Safety Report 13916855 (Version 1)
Quarter: 2017Q3

REPORT INFORMATION
  Report Type: Report from Study
  Country: JP (occurrence: JP)
  Receive Date: 20170829
  Receipt Date: 20170829
  Transmission Date: 20171127
  Serious: Yes (Other)
  Sender: FDA-Public Use
  Company Number: JP-ELI_LILLY_AND_COMPANY-JP201702011201

PATIENT
  Age: 77 Year
  Sex: Female

DRUGS (3)
  1. TERIPARATIDE [Suspect]
     Active Substance: TERIPARATIDE
     Dosage: UNK, EACH EVENING
     Route: 058
  2. OPALMON [Concomitant]
     Active Substance: LIMAPROST
     Route: 048
  3. TERIPARATIDE [Suspect]
     Active Substance: TERIPARATIDE
     Indication: PRODUCT USED FOR UNKNOWN INDICATION
     Dosage: UNK, EACH MORNING
     Route: 058

REACTIONS (5)
  - Blood pressure decreased [Unknown]
  - Somnolence [Recovered/Resolved]
  - Injection site bruising [Unknown]
  - Malaise [Unknown]
  - Loss of consciousness [Unknown]
